FAERS Safety Report 7734317-X (Version None)
Quarter: 2011Q3

REPORT INFORMATION
  Report Type: 
  Country: None (occurrence: None)
  Receive Date: 20110907
  Receipt Date: 20110829
  Transmission Date: 20111222
  Serious: Yes (Hospitalization, Other)
  Sender: FDA-Public Use
  Company Number: US-BAYER-201039310NA

PATIENT
  Age: 47 Year
  Sex: Female
  Weight: 95.692 kg

DRUGS (3)
  1. YAZ [Suspect]
     Indication: CONTRACEPTION
     Dosage: UNK
     Dates: start: 20070501, end: 20070101
  2. BACTRIM DS [Concomitant]
  3. YASMIN [Suspect]
     Indication: CONTRACEPTION
     Dosage: UNK
     Dates: start: 20070515

REACTIONS (5)
  - CEREBROVASCULAR ACCIDENT [None]
  - AMNESIA [None]
  - WRIST FRACTURE [None]
  - ISCHAEMIC STROKE [None]
  - OEDEMA PERIPHERAL [None]
